FAERS Safety Report 8913335 (Version 1)
Quarter: 2012Q4

REPORT INFORMATION
  Report Type: Spontaneous
  Country: IN (occurrence: None)
  Receive Date: 20121113
  Receipt Date: 20121113
  Transmission Date: 20130627
  Serious: Yes (Hospitalization, Other)
  Sender: FDA-Public Use
  Company Number: 2012P1062566

PATIENT
  Age: 18 Year
  Sex: Male

DRUGS (4)
  1. ETHAMBUTOL [Suspect]
     Indication: MILIARY TUBERCULOSIS
  2. ISONIAZID [Suspect]
     Indication: MILIARY TUBERCULOSIS
  3. RIFAMPICIN (NO PREF. NAME) [Suspect]
     Indication: MILIARY TUBERCULOSIS
  4. PYRAZINAMIDE [Suspect]
     Indication: MILIARY TUBERCULOSIS

REACTIONS (8)
  - Dyspnoea [None]
  - Cough [None]
  - Pyrexia [None]
  - Spleen palpable [None]
  - Hypoxia [None]
  - Respiratory alkalosis [None]
  - Haemoglobin decreased [None]
  - Paradoxical drug reaction [None]
